FAERS Safety Report 21629885 (Version 4)
Quarter: 2023Q1

REPORT INFORMATION
  Report Type: Report from Study
  Country: FR (occurrence: FR)
  Receive Date: 20221122
  Receipt Date: 20230117
  Transmission Date: 20230417
  Serious: Yes (Other)
  Sender: FDA-Public Use
  Company Number: FR-AMYLYX PHARMACEUTICALS, INC.-AMX-000440

PATIENT

DRUGS (9)
  1. SODIUM PHENYLBUTYRATE\TAURURSODIOL [Suspect]
     Active Substance: SODIUM PHENYLBUTYRATE\TAURURSODIOL
     Indication: Amyotrophic lateral sclerosis
     Dosage: 1 SACHET BID
     Route: 048
     Dates: start: 20220802, end: 20221001
  2. SODIUM PHENYLBUTYRATE\TAURURSODIOL [Suspect]
     Active Substance: SODIUM PHENYLBUTYRATE\TAURURSODIOL
     Dosage: 1 SACHET TWICE DAILY
     Route: 048
     Dates: start: 20221024, end: 20221027
  3. SODIUM PHENYLBUTYRATE\TAURURSODIOL [Suspect]
     Active Substance: SODIUM PHENYLBUTYRATE\TAURURSODIOL
     Dosage: 1 SACHET DAILY
     Route: 048
     Dates: start: 20221028, end: 20221107
  4. SODIUM PHENYLBUTYRATE\TAURURSODIOL [Suspect]
     Active Substance: SODIUM PHENYLBUTYRATE\TAURURSODIOL
     Dosage: 1 SACHET, BID
     Route: 048
     Dates: start: 20221108
  5. TIGLUTIK [Concomitant]
     Active Substance: RILUZOLE
     Indication: Amyotrophic lateral sclerosis
     Dosage: 100 MILLIGRAM, QD
     Route: 048
     Dates: start: 20220428, end: 20221003
  6. TIGLUTIK [Concomitant]
     Active Substance: RILUZOLE
     Dosage: 50 MILLIGRAM, QD
     Route: 048
     Dates: start: 20221213
  7. CALCIUM CITRATE + D3 [Concomitant]
     Indication: Osteoporosis
     Dosage: 500 MILLIGRAM, QD
     Route: 048
     Dates: start: 2010
  8. DENOSUMAB [Concomitant]
     Active Substance: DENOSUMAB
     Indication: Osteoporosis
     Dosage: UNK
     Route: 058
     Dates: start: 20220831
  9. OENOBIOL [Concomitant]
     Indication: Supplementation therapy
     Dosage: UNK
     Route: 065
     Dates: start: 20220830, end: 20221003

REACTIONS (2)
  - Hepatic cytolysis [Recovered/Resolved]
  - Transaminases increased [Recovered/Resolved]

NARRATIVE: CASE EVENT DATE: 20220930
